FAERS Safety Report 5929289-4 (Version None)
Quarter: 2008Q4

REPORT INFORMATION
  Report Type: 
  Country: None (occurrence: None)
  Receive Date: 20081023
  Receipt Date: 20081023
  Transmission Date: 20090506
  Serious: Yes (Life-Threatening, Hospitalization)
  Sender: FDA-Public Use
  Company Number: None

PATIENT
  Age: 56 Year
  Sex: Female
  Weight: 82 kg

DRUGS (1)
  1. HEPARIN SODIUM [Suspect]
     Indication: SURGERY
     Dosage: 3000 UNITS ONCE IV BOLUS; 2000 UNITS ONCE IV BOLUS
     Dates: start: 20081021, end: 20081021

REACTIONS (1)
  - BLOOD PRESSURE DECREASED [None]
